FAERS Safety Report 4784100-2 (Version None)
Quarter: 2005Q3

REPORT INFORMATION
  Report Type: 
  Country: None (occurrence: None)
  Receive Date: 20050930
  Receipt Date: 20050616
  Transmission Date: 20060218
  Serious: No
  Sender: FDA-Public Use
  Company Number: US-GLAXOSMITHKLINE-A0563004A

PATIENT
  Age: 55 Year
  Sex: Female

DRUGS (2)
  1. FLOVENT [Suspect]
     Dosage: 1PUFF SINGLE DOSE
     Route: 055
     Dates: start: 20050615
  2. NO CONCURRENT MEDICATION [Concomitant]

REACTIONS (3)
  - GLOSSODYNIA [None]
  - ORAL DISCOMFORT [None]
  - THROAT IRRITATION [None]
